FAERS Safety Report 15353618 (Version 3)
Quarter: 2018Q4

REPORT INFORMATION
  Report Type: Spontaneous
  Country: ZA (occurrence: ZA)
  Receive Date: 20180905
  Receipt Date: 20180919
  Transmission Date: 20190204
  Serious: Yes (Other)
  Sender: FDA-Public Use
  Company Number: ZA-ANIPHARMA-2018-ZA-000002

PATIENT
  Age: 59 Year
  Sex: Female

DRUGS (10)
  1. CONCOR [Suspect]
     Active Substance: BISOPROLOL FUMARATE
     Route: 065
  2. PREMARIN [Suspect]
     Active Substance: ESTROGENS, CONJUGATED
     Route: 065
  3. LANSOLOC [Suspect]
     Active Substance: LANSOPRAZOLE
     Route: 065
  4. ELTROXIN [Suspect]
     Active Substance: LEVOTHYROXINE
     Route: 065
  5. CANDESARTAN HCT [Suspect]
     Active Substance: CANDESARTAN CILEXETIL\HYDROCHLOROTHIAZIDE
     Dosage: 16/12.5MG
     Route: 048
  6. URBANOL [Suspect]
     Active Substance: CLOBAZAM
     Route: 065
  7. GLUCOPHAGE XR [Suspect]
     Active Substance: METFORMIN HYDROCHLORIDE
     Route: 065
  8. TREPILINE [Suspect]
     Active Substance: AMITRIPTYLINE
     Route: 065
  9. ASPAVOR [Suspect]
     Active Substance: ATORVASTATIN
  10. ECOTRIN [Suspect]
     Active Substance: ASPIRIN
     Route: 065

REACTIONS (3)
  - Myocardial infarction [Unknown]
  - Neck pain [Not Recovered/Not Resolved]
  - Thrombosis [Unknown]

NARRATIVE: CASE EVENT DATE: 20170627
